FAERS Safety Report 5156217-4 (Version None)
Quarter: 2006Q4

REPORT INFORMATION
  Report Type: 
  Country: None (occurrence: None)
  Receive Date: 20061114
  Receipt Date: 20061030
  Transmission Date: 20070319
  Serious: Yes (Hospitalization)
  Sender: FDA-Public Use
  Company Number: T200600983

PATIENT
  Age: 74 Year
  Sex: Male
  Weight: 69.8 kg

DRUGS (8)
  1. METHADONE HYDROCHLORIDE [Suspect]
     Indication: PAIN
     Dosage: 10 MG, SINGLE, ORAL
     Route: 048
     Dates: start: 20060829, end: 20060829
  2. METHADONE HYDROCHLORIDE [Suspect]
     Indication: PAIN
     Dosage: 50 MG (5 X 10 MG TABLETS), BID, ORAL
     Route: 048
     Dates: start: 20030101
  3. ACTOS   /01460201/ (PIOGLITAZONE) [Concomitant]
  4. FLOMAX   /00889901/ (MORNIFLUMATE) [Concomitant]
  5. ACIPHEX [Concomitant]
  6. LISINOPRIL [Concomitant]
  7. ADVIL  /00109201/ (IBUPROFEN) [Concomitant]
  8. MULTIVITAMIN  /00831791 (VITIAMINS NOS) [Concomitant]

REACTIONS (6)
  - AMNESIA [None]
  - BLOOD PRESSURE SYSTOLIC INCREASED [None]
  - CHEST DISCOMFORT [None]
  - GRAND MAL CONVULSION [None]
  - MUSCULOSKELETAL DISCOMFORT [None]
  - OXYGEN SATURATION DECREASED [None]
